FAERS Safety Report 14650238 (Version 1)
Quarter: 2018Q1

REPORT INFORMATION
  Report Type: Spontaneous
  Country: DE (occurrence: DE)
  Receive Date: 20180316
  Receipt Date: 20180316
  Transmission Date: 20180509
  Serious: Yes (Other)
  Sender: FDA-Public Use
  Company Number: PHHY2017DE188386

PATIENT
  Sex: Male

DRUGS (4)
  1. ACETYLSALICYLIC ACID [Suspect]
     Active Substance: ASPIRIN
     Dosage: UNK
     Route: 065
  2. FSME-IMMUN [Suspect]
     Active Substance: TICK-BORNE ENCEPHALITIS VACCINE
     Dosage: SINGLE DOSE
     Route: 065
     Dates: start: 20170807, end: 20170807
  3. ACETYLSALICYLIC ACID [Suspect]
     Active Substance: ASPIRIN
     Indication: PRODUCT USED FOR UNKNOWN INDICATION
     Dosage: UNK
     Route: 065
  4. FSME-IMMUN [Suspect]
     Active Substance: TICK-BORNE ENCEPHALITIS VACCINE
     Indication: IMMUNISATION
     Dosage: SINGLE DOSE
     Route: 065
     Dates: start: 20170711, end: 20170711

REACTIONS (17)
  - Joint stiffness [Recovering/Resolving]
  - Arthralgia [Recovered/Resolved]
  - Movement disorder [Recovered/Resolved]
  - Neuralgia [Recovering/Resolving]
  - Polymyalgia rheumatica [Unknown]
  - Muscular weakness [Unknown]
  - Inflammatory marker increased [Not Recovered/Not Resolved]
  - Oedema [Recovering/Resolving]
  - Limb discomfort [Recovering/Resolving]
  - Pain [Recovered/Resolved]
  - Paraesthesia [Recovering/Resolving]
  - Myoglobin blood increased [Unknown]
  - Pain in extremity [Recovered/Resolved]
  - Asthenia [Recovered/Resolved]
  - Insomnia [Recovering/Resolving]
  - Fatigue [Recovering/Resolving]
  - Pelvic fluid collection [Unknown]

NARRATIVE: CASE EVENT DATE: 2017
